FAERS Safety Report 9776137 (Version 5)
Quarter: 2014Q1

REPORT INFORMATION
  Report Type: Spontaneous
  Country: IT (occurrence: None)
  Receive Date: 20131218
  Receipt Date: 20140218
  Transmission Date: 20141002
  Serious: Yes (Hospitalization)
  Sender: FDA-Public Use
  Company Number: AUR-APL-2013-10381

PATIENT
  Age: 81 Year
  Sex: Male

DRUGS (7)
  1. RAMIPRIL [Suspect]
     Indication: PRODUCT USED FOR UNKNOWN INDICATION
     Route: 048
     Dates: start: 20130501
  2. CARVEDILOL [Suspect]
     Indication: PRODUCT USED FOR UNKNOWN INDICATION
     Route: 048
     Dates: start: 20121101
  3. LASIX [Suspect]
     Indication: HYPERTENSION
     Route: 048
     Dates: start: 20121201, end: 20131121
  4. ALDACTONE [Suspect]
     Indication: PRODUCT USED FOR UNKNOWN INDICATION
     Route: 048
     Dates: start: 20130501
  5. MINITRAN (GLYCERYL TRINITRATE) [Concomitant]
  6. TORVAST (ATORVASTATIN CALCIUM) [Concomitant]
  7. COUMADIN (WARFARIN SODIUM) [Concomitant]

REACTIONS (4)
  - Malaise [None]
  - Hyperhidrosis [None]
  - Hypotension [None]
  - Presyncope [None]
